FAERS Safety Report 9967682 (Version 1)
Quarter: 2014Q1

REPORT INFORMATION
  Report Type: Spontaneous
  Country: GB (occurrence: GB)
  Receive Date: 20140306
  Receipt Date: 20140306
  Transmission Date: 20141002
  Serious: Yes (Other)
  Sender: FDA-Public Use
  Company Number: GB-MYLANLABS-2014S1004088

PATIENT
  Age: 82 Year
  Sex: Female

DRUGS (11)
  1. TOLTERODINE [Suspect]
     Route: 048
     Dates: end: 20140128
  2. ALENDRONATE [Concomitant]
  3. CALCICHEW D3 [Concomitant]
  4. CODEINE PHOSPHATE [Concomitant]
  5. DIGOXIN [Concomitant]
  6. FERROUS FUMARATE [Concomitant]
  7. LEVOTHYROXINE [Concomitant]
  8. MOVICOL [Concomitant]
  9. OMEPRAZOLE [Concomitant]
  10. PARACETAMOL [Concomitant]
  11. WARFARIN [Concomitant]

REACTIONS (1)
  - Electrocardiogram QT prolonged [Recovered/Resolved]
